FAERS Safety Report 11543407 (Version 1)
Quarter: 2015Q3

REPORT INFORMATION
  Report Type: Report from Study
  Country: US (occurrence: None)
  Receive Date: 20150923
  Receipt Date: 20150923
  Transmission Date: 20151125
  Serious: No
  Sender: FDA-Public Use
  Company Number: US-MDT-ADR-2015-01836

PATIENT
  Age: 53 Year
  Sex: Female

DRUGS (2)
  1. COMPOUNDED BACLOFEN INTRATHECAL 125.0 MCG/ML [Suspect]
     Active Substance: BACLOFEN
     Dosage: 117.21 MCG/DAY
  2. DILAUDID [Suspect]
     Active Substance: HYDROMORPHONE HYDROCHLORIDE
     Dosage: 23.442 MG/DAY

REACTIONS (1)
  - Hypoaesthesia [None]
